FAERS Safety Report 6093839-0 (Version None)
Quarter: 2009Q1

REPORT INFORMATION
  Report Type: 
  Country: None (occurrence: None)
  Receive Date: 20090224
  Receipt Date: 20090224
  Transmission Date: 20090719
  Serious: Yes (Life-Threatening, Hospitalization, Disabling, Other)
  Sender: FDA-Public Use
  Company Number: None

PATIENT
  Sex: Female
  Weight: 72.5755 kg

DRUGS (2)
  1. PREMPRO [Suspect]
     Indication: MENOPAUSAL SYMPTOMS
     Dosage: .625/2.5 MG DAILY PO
     Route: 048
     Dates: start: 19970601, end: 19990301
  2. PREMPHASE 14/14 [Suspect]
     Indication: MENOPAUSAL SYMPTOMS
     Dosage: .625/2.5 MG DAILY PO
     Route: 048
     Dates: start: 19990302, end: 20021001

REACTIONS (4)
  - BREAST CANCER FEMALE [None]
  - HYSTERECTOMY [None]
  - OESTROGEN RECEPTOR ASSAY POSITIVE [None]
  - PROGESTERONE RECEPTOR ASSAY POSITIVE [None]
